FAERS Safety Report 4861520-9 (Version None)
Quarter: 2005Q4

REPORT INFORMATION
  Report Type: 
  Country: None (occurrence: None)
  Receive Date: 20051220
  Receipt Date: 20051012
  Transmission Date: 20060501
  Serious: Yes (Disabling)
  Sender: FDA-Public Use
  Company Number: IE-AVENTIS-200519179GDDC

PATIENT
  Age: 32 Year
  Sex: Female

DRUGS (4)
  1. LANTUS [Suspect]
     Indication: DIABETES MELLITUS
     Dosage: DOSE: 72-76; DOSE UNIT: UNITS
     Route: 058
  2. INSULIN ASPART [Suspect]
     Indication: DIABETES MELLITUS
     Dosage: DOSE UNIT: UNITS
     Route: 058
     Dates: start: 20050208
  3. BETAMETHASONE [Concomitant]
     Indication: PROPHYLAXIS
     Dosage: DOSE: 12 MG X 2 DOSES
     Route: 030
     Dates: start: 20050830, end: 20050831
  4. BETAMETHASONE [Concomitant]
     Indication: RESPIRATORY DISTRESS
     Dosage: DOSE: 12 MG X 2 DOSES
     Route: 030
     Dates: start: 20050830, end: 20050831

REACTIONS (3)
  - CAESAREAN SECTION [None]
  - DRUG EXPOSURE BEFORE PREGNANCY [None]
  - PROTEINURIA [None]
